FAERS Safety Report 24972464 (Version 2)
Quarter: 2025Q3

REPORT INFORMATION
  Report Type: Report from Study
  Country: US (occurrence: US)
  Receive Date: 20250215
  Receipt Date: 20250810
  Transmission Date: 20251021
  Serious: Yes (Hospitalization, Other)
  Sender: ALEXION PHARMACEUTICALS
  Company Number: US-AstraZeneca-2018SF55122

PATIENT
  Age: 82 Year
  Sex: Female
  Weight: 60.781 kg

DRUGS (4)
  1. NEXIUM [Suspect]
     Active Substance: ESOMEPRAZOLE MAGNESIUM
     Indication: Gastrooesophageal reflux disease
  2. NEXIUM [Suspect]
     Active Substance: ESOMEPRAZOLE MAGNESIUM
     Indication: Gastrooesophageal reflux disease
  3. NEXIUM [Suspect]
     Active Substance: ESOMEPRAZOLE MAGNESIUM
     Indication: Hiatus hernia
  4. ELIQUIS [Concomitant]
     Active Substance: APIXABAN
     Indication: Anticoagulant therapy

REACTIONS (17)
  - Transient ischaemic attack [Unknown]
  - Hypoacusis [Not Recovered/Not Resolved]
  - Macular degeneration [Unknown]
  - Visual impairment [Unknown]
  - Pain [Unknown]
  - Fatigue [Unknown]
  - Asthenopia [Unknown]
  - Nasopharyngitis [Unknown]
  - Hiatus hernia [Unknown]
  - Oropharyngeal pain [Unknown]
  - Fall [Unknown]
  - Urinary tract infection [Unknown]
  - Atrial fibrillation [Unknown]
  - Heart alternation [Unknown]
  - Body height decreased [Unknown]
  - Off label use [Unknown]
  - Product use in unapproved indication [Unknown]

NARRATIVE: CASE EVENT DATE: 20150101
